FAERS Safety Report 17472770 (Version 1)
Quarter: 2020Q1

REPORT INFORMATION
  Report Type: Spontaneous
  Country: US (occurrence: US)
  Receive Date: 20200228
  Receipt Date: 20200228
  Transmission Date: 20200409
  Serious: Yes (Hospitalization)
  Sender: FDA-Public Use
  Company Number: None

PATIENT
  Age: 26 Year
  Sex: Male
  Weight: 94.5 kg

DRUGS (1)
  1. ABILIFY [Suspect]
     Active Substance: ARIPIPRAZOLE
     Indication: BIPOLAR II DISORDER
     Dosage: ?          QUANTITY:30 TABLET(S);?
     Dates: start: 20200131, end: 20200223

REACTIONS (3)
  - Suicidal ideation [None]
  - Akathisia [None]
  - Feeling abnormal [None]

NARRATIVE: CASE EVENT DATE: 20200222
